FAERS Safety Report 7591664-2 (Version None)
Quarter: 2011Q2

REPORT INFORMATION
  Report Type: 
  Country: None (occurrence: None)
  Receive Date: 20110627
  Receipt Date: 20110614
  Transmission Date: 20111010
  Serious: Yes (Life-Threatening, Other)
  Sender: FDA-Public Use
  Company Number: JP-2011-10602

PATIENT
  Age: 60 Year
  Sex: Female
  Weight: 70 kg

DRUGS (10)
  1. PRIMEPERAN (METOCLOPRAMIDE HYDROCHLORIDE) [Concomitant]
  2. NIZATIDINE [Concomitant]
  3. GLYCEOL (FRUCTOSE, GLYCEROL) [Concomitant]
  4. ATELEC (CLINIDIPINE) [Concomitant]
  5. DAI-KENCHU-TO (DAI-KENCHU-TO) [Concomitant]
  6. BIOFERMIN (BACILLUS SUBTILIS, LACTOBACILLUS, STREPTOCOCCUS FAECALIS) [Concomitant]
  7. PLETAAL (CILOSTAZOL) ORAL POWDER, 20% PERCENT [Suspect]
     Indication: CEREBROVASCULAR SPASM
     Dosage: 2 DF DOSAGE FORM, BID, PARENTERAL
     Route: 051
     Dates: start: 20110325, end: 20110329
  8. FLUMARIN (FLOMOXEF SODIUM) [Concomitant]
  9. ERIL (FASUDIL HYDROCHLORIDE) [Concomitant]
  10. HOCHU-EKKI-TO (HOCHU-EKKI-TO) [Concomitant]

REACTIONS (5)
  - MENINGITIS [None]
  - TACHYCARDIA [None]
  - CARDIAC FAILURE [None]
  - DEHYDRATION [None]
  - HYPOTENSION [None]
